FAERS Safety Report 4661507-5 (Version None)
Quarter: 2005Q3

REPORT INFORMATION
  Report Type: 
  Country: None (occurrence: None)
  Receive Date: 20050511
  Receipt Date: 20050511
  Transmission Date: 20060218
  Serious: No
  Sender: FDA-Public Use
  Company Number: None

PATIENT
  Sex: Male
  Weight: 61.2356 kg

DRUGS (4)
  1. ISOTRETINOIN [Suspect]
     Indication: ACNE
     Dosage: 20MG, 40MG   1/DAY   ORAL
     Route: 048
     Dates: start: 20041101, end: 20040324
  2. SOTRET [Suspect]
     Indication: ACNE
     Dosage: 30 MG   2/DAY   ORAL
     Route: 048
     Dates: start: 20050201, end: 20050221
  3. MEN'S MULTI-VITAMIN [Concomitant]
  4. TYLENOL (CAPLET) [Concomitant]

REACTIONS (6)
  - ARTHRALGIA [None]
  - BLOOD CREATINE PHOSPHOKINASE INCREASED [None]
  - BONE DISORDER [None]
  - EXERCISE CAPACITY DECREASED [None]
  - MYALGIA [None]
  - STRESS FRACTURE [None]
